FAERS Safety Report 6470720-6 (Version None)
Quarter: 2009Q4

REPORT INFORMATION
  Report Type: 
  Country: None (occurrence: None)
  Receive Date: 20091203
  Receipt Date: 20091127
  Transmission Date: 20100525
  Serious: Yes (Hospitalization)
  Sender: FDA-Public Use
  Company Number: A0832891A

PATIENT
  Sex: Male
  Weight: 60 kg

DRUGS (2)
  1. SERETIDE [Suspect]
     Dosage: 1PUFF TWICE PER DAY
     Route: 055
     Dates: start: 20070101
  2. CONCURRENT MEDICATIONS [Concomitant]

REACTIONS (1)
  - PNEUMONIA [None]
